FAERS Safety Report 6173688-5 (Version None)
Quarter: 2009Q2

REPORT INFORMATION
  Report Type: 
  Country: None (occurrence: None)
  Receive Date: 20090430
  Receipt Date: 20090420
  Transmission Date: 20091009
  Serious: Yes (Hospitalization)
  Sender: FDA-Public Use
  Company Number: DE-AMGEN-STX337015

PATIENT
  Sex: Male
  Weight: 70 kg

DRUGS (7)
  1. MIMPARA [Suspect]
     Indication: HYPERPARATHYROIDISM SECONDARY
     Route: 048
     Dates: start: 20061206
  2. PROGRAF [Suspect]
     Route: 048
     Dates: start: 20080124
  3. DECORTIN [Suspect]
     Route: 048
     Dates: start: 20080124
  4. CELLCEPT [Suspect]
     Route: 048
     Dates: start: 20080124
  5. PANTOPRAZOLE SODIUM [Concomitant]
     Route: 048
     Dates: start: 20080124
  6. FLUVASTATIN [Concomitant]
     Route: 048
     Dates: start: 20080124
  7. UNSPECIFIED MEDICATION [Concomitant]
     Route: 048
     Dates: start: 20080124

REACTIONS (1)
  - RENAL CELL CARCINOMA [None]
